FAERS Safety Report 14918849 (Version 2)
Quarter: 2018Q2

REPORT INFORMATION
  Report Type: Spontaneous
  Country: US (occurrence: US)
  Receive Date: 20180521
  Receipt Date: 20180524
  Transmission Date: 20180711
  Serious: No
  Sender: FDA-Public Use
  Company Number: US-PFIZER INC-2018204783

PATIENT
  Age: 40 Year
  Sex: Female
  Weight: 62.14 kg

DRUGS (3)
  1. LUPRON [Suspect]
     Active Substance: LEUPROLIDE ACETATE
     Indication: UTERINE LEIOMYOMA
     Dosage: UNK [3.75 INJECTION]
     Dates: start: 201610
  2. LUPRON [Suspect]
     Active Substance: LEUPROLIDE ACETATE
     Dosage: UNK
     Dates: start: 201709
  3. MEDROXYPROGESTERONE ACETATE. [Suspect]
     Active Substance: MEDROXYPROGESTERONE ACETATE
     Indication: UTERINE LEIOMYOMA
     Dosage: 20 MG, 3X/DAY [TAKES 2 TABLETS BY MOUTH THREE TIMES A DAY/TAKES THE MEDICATION IN THE MORNING]
     Route: 048
     Dates: start: 201804

REACTIONS (3)
  - Condition aggravated [Unknown]
  - Metrorrhagia [Not Recovered/Not Resolved]
  - Anaemia [Unknown]

NARRATIVE: CASE EVENT DATE: 201804
